FAERS Safety Report 16231229 (Version 3)
Quarter: 2019Q2

REPORT INFORMATION
  Report Type: Spontaneous
  Country: US (occurrence: US)
  Receive Date: 20190424
  Receipt Date: 20190604
  Transmission Date: 20190711
  Serious: No
  Sender: FDA-Public Use
  Company Number: US-SHIRE-US201913413

PATIENT
  Age: 56 Year
  Sex: Female
  Weight: 88.44 kg

DRUGS (3)
  1. KALBITOR [Suspect]
     Active Substance: ECALLANTIDE
     Indication: HEREDITARY ANGIOEDEMA
     Dosage: UNK, 4X A WEEK
     Route: 065
  2. TAKHZYRO [Suspect]
     Active Substance: LANADELUMAB-FLYO
     Indication: HEREDITARY ANGIOEDEMA
     Dosage: 300 MILLIGRAM, 1X/2WKS
     Route: 058
     Dates: start: 201903
  3. TAKHZYRO [Suspect]
     Active Substance: LANADELUMAB-FLYO
     Dosage: 300 MILLIGRAM, 1X/2WKS
     Route: 058
     Dates: start: 20190418

REACTIONS (2)
  - Hereditary angioedema [Recovering/Resolving]
  - Therapeutic product effect delayed [Unknown]

NARRATIVE: CASE EVENT DATE: 201903
